FAERS Safety Report 13621385 (Version 2)
Quarter: 2017Q3

REPORT INFORMATION
  Report Type: Spontaneous
  Country: US (occurrence: US)
  Receive Date: 20170607
  Receipt Date: 20170825
  Transmission Date: 20171127
  Serious: Yes (Death)
  Sender: FDA-Public Use
  Company Number: US-PFIZER INC-2017244616

PATIENT
  Age: 70 Year
  Sex: Male
  Weight: 88.43 kg

DRUGS (1)
  1. XELJANZ [Suspect]
     Active Substance: TOFACITINIB CITRATE
     Indication: RHEUMATOID ARTHRITIS
     Dosage: 5 MG, 2X/DAY
     Route: 048
     Dates: start: 201602

REACTIONS (4)
  - Hypoaesthesia [Unknown]
  - Muscular weakness [Unknown]
  - Joint instability [Unknown]
  - Death [Fatal]
